FAERS Safety Report 9027227 (Version 3)
Quarter: 2013Q2

REPORT INFORMATION
  Report Type: Spontaneous
  Country: US (occurrence: US)
  Receive Date: 20130123
  Receipt Date: 20130419
  Transmission Date: 20140414
  Serious: Yes (Hospitalization)
  Sender: FDA-Public Use
  Company Number: US-B.I. PHARMACEUTICALS,INC./RIDGEFIELD-2013-BI-01138BP

PATIENT
  Age: 75 Year
  Sex: Male
  Weight: 90.26 kg

DRUGS (13)
  1. PRADAXA [Suspect]
     Indication: ANTICOAGULANT THERAPY
     Dates: start: 20110603, end: 201204
  2. PRADAXA [Suspect]
     Indication: ATRIAL FIBRILLATION
  3. ASPIRIN [Concomitant]
  4. MORPHINE [Concomitant]
     Dates: start: 200911
  5. DEXASONE [Concomitant]
  6. BUMEX [Concomitant]
  7. DIGOXIN [Concomitant]
  8. VERAPAMIL [Concomitant]
  9. SPIRONOLACTONE [Concomitant]
  10. NEXIUM [Concomitant]
  11. MULTIVITAMIN [Concomitant]
  12. ATROVENT [Concomitant]
  13. VENLAFAXINE [Concomitant]

REACTIONS (1)
  - Gastrointestinal haemorrhage [Unknown]
